FAERS Safety Report 12160637 (Version 1)
Quarter: 2016Q1

REPORT INFORMATION
  Report Type: Spontaneous
  Country: IN (occurrence: IN)
  Receive Date: 20160308
  Receipt Date: 20160308
  Transmission Date: 20160526
  Serious: Yes (Death, Other)
  Sender: FDA-Public Use
  Company Number: IN-CELGENE-IND-2016025571

PATIENT

DRUGS (1)
  1. REVLIMID [Suspect]
     Active Substance: LENALIDOMIDE
     Indication: NON-HODGKIN^S LYMPHOMA
     Dosage: 15 MILLIGRAM
     Route: 048

REACTIONS (9)
  - Non-Hodgkin^s lymphoma [Unknown]
  - No therapeutic response [Unknown]
  - Bone marrow failure [Unknown]
  - Neutropenia [Unknown]
  - Death [Fatal]
  - Fatigue [Unknown]
  - Rash [Unknown]
  - Thrombocytopenia [Unknown]
  - Constipation [Unknown]
